FAERS Safety Report 4287261-7 (Version None)
Quarter: 2004Q1

REPORT INFORMATION
  Report Type: 
  Country: None (occurrence: None)
  Receive Date: 20040126
  Receipt Date: 20031006
  Transmission Date: 20041129
  Serious: No
  Sender: FDA-Public Use
  Company Number: USA030639918

PATIENT
  Age: 57 Year
  Sex: Female
  Weight: 47 kg

DRUGS (13)
  1. FORTEO [Suspect]
     Indication: OSTEOPOROSIS
     Dosage: 20 UG/IN THE EVENING
     Dates: start: 20030123, end: 20030620
  2. FOSAMAX [Concomitant]
  3. HORMONE REPLACEMENT THERAPY [Concomitant]
  4. CALCIUM [Concomitant]
  5. VITAMIN D [Concomitant]
  6. PREVACID [Concomitant]
  7. HYDROCHLOROTHIAZIDE [Concomitant]
  8. ESTRACE [Concomitant]
  9. VITAMIN E [Concomitant]
  10. GLUCOSAMINE [Concomitant]
  11. CHNODROITIN SULFATE [Concomitant]
  12. VITAMIN B6 [Concomitant]
  13. MAGNESIUM [Concomitant]

REACTIONS (8)
  - ASTHENIA [None]
  - CHEST PAIN [None]
  - DYSPNOEA EXERTIONAL [None]
  - FATIGUE [None]
  - HEART RATE IRREGULAR [None]
  - MUSCLE CRAMP [None]
  - MUSCULAR WEAKNESS [None]
  - PALPITATIONS [None]
